FAERS Safety Report 7897895-6 (Version None)
Quarter: 2011Q4

REPORT INFORMATION
  Report Type: 
  Country: None (occurrence: None)
  Receive Date: 20111107
  Receipt Date: 20111027
  Transmission Date: 20120403
  Serious: Yes (Death)
  Sender: FDA-Public Use
  Company Number: LU-CELGENEUS-098-21880-11103364

PATIENT
  Sex: Male
  Weight: 85 kg

DRUGS (14)
  1. LANOXIN [Concomitant]
     Dosage: .25 MILLIGRAM
     Route: 065
     Dates: end: 20111022
  2. SOMELIX [Concomitant]
     Dosage: 160 MILLIGRAM
     Route: 065
     Dates: end: 20111022
  3. CORTICOIDS [Concomitant]
     Indication: MYELOFIBROSIS
     Route: 065
  4. SILNOIT [Concomitant]
     Route: 065
     Dates: end: 20111022
  5. DEXAMETHASONE [Concomitant]
     Route: 065
     Dates: end: 20111022
  6. BUMETANIDE [Concomitant]
     Route: 065
     Dates: end: 20111022
  7. REVLIMID [Suspect]
     Route: 048
     Dates: start: 20111020, end: 20111022
  8. ASAFLOW [Concomitant]
     Route: 065
     Dates: end: 20111022
  9. AMLODIPINE BESYLATE [Concomitant]
     Route: 065
     Dates: end: 20111022
  10. METHIMAZOLE [Concomitant]
     Dosage: 20 MILLIGRAM
     Route: 065
     Dates: end: 20111022
  11. XANAX [Concomitant]
     Dosage: .5
     Route: 065
     Dates: end: 20111022
  12. ALLOPURINOL [Concomitant]
     Route: 065
     Dates: end: 20111022
  13. REDONEX [Concomitant]
     Route: 065
     Dates: end: 20111022
  14. SIPRALEXA [Concomitant]
     Route: 065
     Dates: end: 20111022

REACTIONS (2)
  - GASTROINTESTINAL HAEMORRHAGE [None]
  - SEPSIS [None]
